FAERS Safety Report 17579364 (Version 1)
Quarter: 2020Q1

REPORT INFORMATION
  Report Type: Spontaneous
  Country: US (occurrence: US)
  Receive Date: 20200325
  Receipt Date: 20200325
  Transmission Date: 20200409
  Serious: No
  Sender: FDA-Public Use
  Company Number: US-ALLERGAN-1949268US

PATIENT
  Sex: Female
  Weight: 63.5 kg

DRUGS (1)
  1. OXYBUTYNIN PCH - BP [Suspect]
     Active Substance: OXYBUTYNIN
     Indication: HYPERTONIC BLADDER
     Dosage: UNK
     Route: 065
     Dates: start: 2019, end: 2019

REACTIONS (3)
  - Gait disturbance [Unknown]
  - Fall [Unknown]
  - Dizziness [Unknown]
